FAERS Safety Report 15587547 (Version 1)
Quarter: 2018Q4

REPORT INFORMATION
  Report Type: Spontaneous
  Country: US (occurrence: US)
  Receive Date: 20181105
  Receipt Date: 20181105
  Transmission Date: 20190205
  Serious: Yes (Other)
  Sender: FDA-Public Use
  Company Number: US-SA-2018SA304937

PATIENT
  Age: 68 Year
  Sex: Male
  Weight: 81.63 kg

DRUGS (4)
  1. METOPROLOL [METOPROLOL FUMARATE] [Concomitant]
     Dosage: UNK UNK, UNK
     Route: 065
  2. LISINOPRIL. [Concomitant]
     Active Substance: LISINOPRIL
     Dosage: UNK UNK, UNK
     Route: 065
  3. WELCHOL [Suspect]
     Active Substance: COLESEVELAM HYDROCHLORIDE
     Indication: BILE ACID MALABSORPTION
     Dosage: 1250 MG, TID
     Route: 048
  4. PENTASA COMPACT [Concomitant]
     Dosage: UNK UNK, UNK
     Route: 065

REACTIONS (4)
  - Atrial fibrillation [Unknown]
  - Limb injury [Unknown]
  - Off label use [Unknown]
  - Micturition disorder [Unknown]

NARRATIVE: CASE EVENT DATE: 2016
